FAERS Safety Report 11395153 (Version 1)
Quarter: 2015Q3

REPORT INFORMATION
  Report Type: Spontaneous
  Country: IN (occurrence: None)
  Receive Date: 20150817
  Receipt Date: 20150817
  Transmission Date: 20151125
  Serious: No
  Sender: FDA-Public Use
  Company Number: None

PATIENT
  Age: 28 Year
  Sex: Male
  Weight: 62 kg

DRUGS (1)
  1. DARIFENACIN(DARILONG) DARILONG 7.5 SUN PHARMA LABORATORIES [Suspect]
     Active Substance: DARIFENACIN
     Indication: HYPERTONIC BLADDER
     Dosage: 1 PILL(7.5MG EX. RELEASE) ONCE DAILY TAKEN BY MOUTH
     Route: 048
     Dates: start: 20150807, end: 20150814

REACTIONS (2)
  - Urinary hesitation [None]
  - Dry mouth [None]

NARRATIVE: CASE EVENT DATE: 20150815
